FAERS Safety Report 8890225 (Version 2)
Quarter: 2013Q1

REPORT INFORMATION
  Report Type: Spontaneous
  Country: US (occurrence: US)
  Receive Date: 20121107
  Receipt Date: 20130109
  Transmission Date: 20140127
  Serious: Yes (Hospitalization)
  Sender: FDA-Public Use
  Company Number: US-BAYER-2012-115613

PATIENT
  Age: 29 Year
  Sex: Female
  Weight: 63.49 kg

DRUGS (2)
  1. YASMIN [Suspect]
     Dosage: UNK
     Dates: start: 200601, end: 200612
  2. WELLBUTRIN [Concomitant]
     Dosage: UNK
     Dates: start: 2005

REACTIONS (12)
  - Cholecystitis acute [None]
  - Asthenia [None]
  - Dizziness [None]
  - Injury [None]
  - Vomiting [None]
  - Abdominal pain upper [None]
  - Emotional distress [None]
  - Anhedonia [None]
  - Depression [None]
  - General physical health deterioration [None]
  - Anxiety [None]
  - Pain [None]
